FAERS Safety Report 7061479-2 (Version None)
Quarter: 2010Q4

REPORT INFORMATION
  Report Type: 
  Country: None (occurrence: None)
  Receive Date: 20101026
  Receipt Date: 20101018
  Transmission Date: 20110411
  Serious: Yes (Death, Hospitalization, Other)
  Sender: FDA-Public Use
  Company Number: SG-BAYER-201034531GPV

PATIENT
  Age: 61 Year
  Sex: Male
  Weight: 58 kg

DRUGS (21)
  1. SORAFENIB [Suspect]
     Indication: HEPATIC NEOPLASM MALIGNANT
     Dosage: TOTAL DAILY DOSE: 800 MG  UNIT DOSE: 200 MG
     Route: 048
     Dates: start: 20100716, end: 20100729
  2. SORAFENIB [Suspect]
     Dosage: TOTAL DAILY DOSE: 800 MG
     Route: 048
     Dates: start: 20100826, end: 20100903
  3. PLACEBO TO ERLOTINIB [Suspect]
     Indication: HEPATIC NEOPLASM MALIGNANT
     Route: 048
     Dates: start: 20100826, end: 20100903
  4. PLACEBO TO ERLOTINIB [Suspect]
     Dosage: TOTAL DAILY DOSE: 150 MG
     Route: 048
     Dates: start: 20100716, end: 20100729
  5. PARACETAMOL [Concomitant]
     Route: 048
     Dates: start: 20100730, end: 20100730
  6. FAMOTIDINE [Concomitant]
     Indication: ABDOMINAL DISCOMFORT
     Route: 048
     Dates: start: 20100730
  7. 20% ALBUMIN [Concomitant]
     Indication: BLOOD ALBUMIN DECREASED
     Route: 042
     Dates: start: 20100803, end: 20101005
  8. LAMIVUDINE [Concomitant]
     Indication: HEPATITIS
     Route: 048
     Dates: start: 20100702, end: 20101014
  9. CLEXANE [Concomitant]
     Indication: HEPATIC VEIN THROMBOSIS
     Route: 058
     Dates: start: 20100713, end: 20100802
  10. FRUSEMIDE [Concomitant]
     Indication: ASCITES
     Route: 048
     Dates: start: 20100727, end: 20100802
  11. FRUSEMIDE [Concomitant]
     Route: 048
     Dates: start: 20100530, end: 20100726
  12. ALDACTONE [Concomitant]
     Indication: ASCITES
     Route: 048
     Dates: start: 20100804
  13. ALDACTONE [Concomitant]
     Route: 048
     Dates: start: 20100530, end: 20100726
  14. ALDACTONE [Concomitant]
     Route: 048
     Dates: start: 20100727, end: 20100802
  15. MAXOLON [Concomitant]
     Route: 048
     Dates: start: 20100812, end: 20101014
  16. TETRACYCLIN [Concomitant]
     Route: 061
     Dates: start: 20100811, end: 20101014
  17. FLUIMUCIL [Concomitant]
     Route: 048
     Dates: start: 20100915, end: 20101014
  18. SENNA [Concomitant]
     Route: 048
     Dates: start: 20100818, end: 20101014
  19. ATARAX [Concomitant]
     Route: 048
     Dates: start: 20100821, end: 20101014
  20. MORPHINE SULFATE [Concomitant]
     Dosage: 15-20MGS
     Route: 048
     Dates: start: 20100823, end: 20101014
  21. FENTANYL CITRATE [Concomitant]
     Route: 062
     Dates: start: 20100821, end: 20101014

REACTIONS (7)
  - ASCITES [None]
  - BLOOD CREATININE INCREASED [None]
  - DYSPNOEA [None]
  - HEPATIC CIRRHOSIS [None]
  - HYPERKALAEMIA [None]
  - HYPONATRAEMIA [None]
  - LETHARGY [None]
